FAERS Safety Report 6156655-7 (Version None)
Quarter: 2009Q2

REPORT INFORMATION
  Report Type: 
  Country: None (occurrence: None)
  Receive Date: 20090416
  Receipt Date: 20090402
  Transmission Date: 20091009
  Serious: Yes (Other)
  Sender: FDA-Public Use
  Company Number: US-BAYER-200716752NA

PATIENT
  Age: 49 Year
  Sex: Female
  Weight: 94 kg

DRUGS (11)
  1. CAMPATH [Suspect]
     Indication: ACUTE LYMPHOCYTIC LEUKAEMIA
     Dosage: AS USED: 5 MG
     Route: 058
     Dates: start: 20071120
  2. CAMPATH [Suspect]
     Dosage: AS USED: 5 MG
     Route: 058
     Dates: start: 20071123
  3. CAMPATH [Suspect]
     Dosage: AS USED: 5 MG
     Route: 058
     Dates: start: 20071126
  4. CAMPATH [Suspect]
     Dosage: AS USED: 5 MG
     Route: 058
     Dates: start: 20071206
  5. CAMPATH [Suspect]
     Dosage: AS USED: 5 MG
     Route: 058
     Dates: start: 20071203
  6. CAMPATH [Suspect]
     Dosage: AS USED: 5 MG
     Route: 058
     Dates: start: 20071130
  7. DEXAMETHASONE TAB [Suspect]
     Indication: ACUTE LYMPHOCYTIC LEUKAEMIA
     Dosage: TOTAL DAILY DOSE: 6 MG/M2
     Route: 048
     Dates: start: 20071130
  8. ELSPAR [Suspect]
     Indication: ACUTE LYMPHOCYTIC LEUKAEMIA
     Dosage: AS USED: 500 IU/KG
     Route: 030
     Dates: start: 20071121
  9. VINCRISTINE [Suspect]
     Indication: ACUTE LYMPHOCYTIC LEUKAEMIA
     Dosage: AS USED: 2 MG
     Route: 040
     Dates: start: 20071121
  10. METHOTREXATE [Suspect]
     Indication: ACUTE LYMPHOCYTIC LEUKAEMIA
     Dosage: AS USED: 100 MG/M2
     Route: 042
     Dates: start: 20071120
  11. METHOTREXATE [Suspect]
     Dosage: AS USED: 100 MG/M2
     Route: 042
     Dates: start: 20071130

REACTIONS (7)
  - DIABETES MELLITUS [None]
  - HYPERGLYCAEMIA [None]
  - HYPOALBUMINAEMIA [None]
  - NEUTROPHIL COUNT DECREASED [None]
  - POLLAKIURIA [None]
  - THIRST [None]
  - WHITE BLOOD CELL COUNT DECREASED [None]
